FAERS Safety Report 9194812 (Version 1)
Quarter: 2013Q1

REPORT INFORMATION
  Report Type: Spontaneous
  Country: US (occurrence: US)
  Receive Date: 20130328
  Receipt Date: 20130328
  Transmission Date: 20140127
  Serious: No
  Sender: FDA-Public Use
  Company Number: US-ALLERGAN-1211615US

PATIENT
  Age: 62 Year
  Sex: Female

DRUGS (4)
  1. LATISSE 0.03% [Suspect]
     Indication: GROWTH OF EYELASHES
     Dosage: 2 GTT, QHS
     Route: 061
     Dates: start: 201202, end: 201202
  2. LATISSE 0.03% [Suspect]
     Dosage: 2 GTT, QHS
     Route: 061
     Dates: start: 201202, end: 201202
  3. BLOOD PRESSURE PILLS [Concomitant]
     Indication: BLOOD PRESSURE
  4. PERMANENT MAKE -UP [Concomitant]

REACTIONS (3)
  - Growth of eyelashes [Recovered/Resolved]
  - Skin hyperpigmentation [Recovered/Resolved]
  - Therapeutic response decreased [Not Recovered/Not Resolved]
